FAERS Safety Report 14727649 (Version 2)
Quarter: 2018Q2

REPORT INFORMATION
  Report Type: Spontaneous
  Country: GB (occurrence: GB)
  Receive Date: 20180406
  Receipt Date: 20180628
  Transmission Date: 20180711
  Serious: Yes (Death)
  Sender: FDA-Public Use
  Company Number: GB-BIOVITRUM-2018GB0327

PATIENT
  Sex: Male

DRUGS (1)
  1. ORFADIN [Suspect]
     Active Substance: NITISINONE
     Indication: ALKAPTONURIA

REACTIONS (1)
  - Drowning [Fatal]
